FAERS Safety Report 17356460 (Version 1)
Quarter: 2020Q1

REPORT INFORMATION
  Report Type: Spontaneous
  Country: CA (occurrence: CA)
  Receive Date: 20200131
  Receipt Date: 20200131
  Transmission Date: 20200409
  Serious: Yes (Hospitalization, Other)
  Sender: FDA-Public Use
  Company Number: CA-TEVA-2020-CA-1176828

PATIENT
  Age: 35 Year
  Sex: Female
  Weight: 46 kg

DRUGS (13)
  1. VITAMIN B6 [Concomitant]
     Active Substance: PYRIDOXINE HYDROCHLORIDE
  2. VITAMIN C [Concomitant]
     Active Substance: ASCORBIC ACID
  3. VENLAFAXINE [Suspect]
     Active Substance: VENLAFAXINE HYDROCHLORIDE
     Indication: HOT FLUSH
     Dosage: 37.5 MILLIGRAM DAILY;
     Route: 048
  4. MACROBID [Concomitant]
     Active Substance: NITROFURANTOIN\NITROFURANTOIN MONOHYDRATE
  5. DOXORUBICIN HYDROCHLORIDE. [Suspect]
     Active Substance: DOXORUBICIN HYDROCHLORIDE
     Indication: OVARIAN CANCER
     Route: 042
  6. CALMAG [CALCIUM;MAGNESIUM] [Concomitant]
  7. EUCERIN [PARAFFIN, LIQUID;PETROLATUM;WOOL FAT] [Concomitant]
  8. VITAMIN B12 [Concomitant]
     Active Substance: CYANOCOBALAMIN
  9. WARFARIN [Concomitant]
     Active Substance: WARFARIN
  10. FOLIC ACID. [Suspect]
     Active Substance: FOLIC ACID
     Indication: SINGLE PHOTON EMISSION COMPUTERISED TOMOGRAM
     Route: 042
  11. VITAMIN B1 [Concomitant]
     Active Substance: THIAMINE HYDROCHLORIDE
  12. DEXAMETHASONE. [Suspect]
     Active Substance: DEXAMETHASONE
     Indication: PROPHYLAXIS OF NAUSEA AND VOMITING
     Route: 065
  13. GRANISETRON [Suspect]
     Active Substance: GRANISETRON
     Indication: PROPHYLAXIS OF NAUSEA AND VOMITING
     Route: 048

REACTIONS (2)
  - Pneumonia [Unknown]
  - Neoplasm progression [Unknown]
